FAERS Safety Report 8779358 (Version 2)
Quarter: 2012Q4

REPORT INFORMATION
  Report Type: 
  Country: US (occurrence: US)
  Receive Date: 20120911
  Receipt Date: 20120924
  Transmission Date: 20130627
  Serious: Yes (Other)
  Sender: FDA-Public Use
  Company Number: US-TEVA-358018USA

PATIENT
  Age: 30 Year
  Sex: Female

DRUGS (2)
  1. CLARAVIS [Suspect]
     Route: 048
     Dates: start: 20120501, end: 20120816
  2. ORTHO TRI CYCLEN [Concomitant]
     Route: 048

REACTIONS (1)
  - Unintended pregnancy [Recovered/Resolved]
